FAERS Safety Report 8920934 (Version 1)
Quarter: 2012Q4

REPORT INFORMATION
  Report Type: 
  Country: JP (occurrence: JP)
  Receive Date: 20121121
  Receipt Date: 20121121
  Transmission Date: 20130627
  Serious: Yes (Other)
  Sender: FDA-Public Use
  Company Number: JP-GLAXOSMITHKLINE-B0846068A

PATIENT
  Sex: Female

DRUGS (2)
  1. FLUTICASONE PROPIONATE [Suspect]
     Indication: PRODUCT USED FOR UNKNOWN INDICATION
     Route: 055
  2. PREDONINE [Concomitant]
     Indication: RHEUMATIC DISORDER
     Route: 048

REACTIONS (5)
  - Leukoplakia oral [Not Recovered/Not Resolved]
  - Leukoplakia oral [Not Recovered/Not Resolved]
  - Lip disorder [Not Recovered/Not Resolved]
  - Oral disorder [Not Recovered/Not Resolved]
  - Cough [Recovered/Resolved]
